FAERS Safety Report 12422012 (Version 1)
Quarter: 2016Q2

REPORT INFORMATION
  Report Type: Spontaneous
  Country: GB (occurrence: GB)
  Receive Date: 20160531
  Receipt Date: 20160531
  Transmission Date: 20160815
  Serious: Yes (Other)
  Sender: FDA-Public Use
  Company Number: GB-ALLERGAN-1658219US

PATIENT
  Age: 34 Year
  Sex: Female
  Weight: 49 kg

DRUGS (1)
  1. PYLERA [Suspect]
     Active Substance: BISMUTH SUBCITRATE POTASSIUM\METRONIDAZOLE\TETRACYCLINE HYDROCHLORIDE
     Indication: PRODUCT USED FOR UNKNOWN INDICATION
     Dosage: UNK
     Route: 048
     Dates: start: 20160412, end: 20160421

REACTIONS (2)
  - Skin disorder [Not Recovered/Not Resolved]
  - Skin discolouration [Not Recovered/Not Resolved]
